FAERS Safety Report 8161537-5 (Version None)
Quarter: 2012Q1

REPORT INFORMATION
  Report Type: 
  Country: None (occurrence: None)
  Receive Date: 20120103
  Receipt Date: 20111001
  Transmission Date: 20120608
  Serious: No
  Sender: FDA-Public Use
  Company Number: AE-2011-001981

PATIENT
  Age: 58 Year
  Sex: Female

DRUGS (2)
  1. INCIVEK [Suspect]
     Dosage: 2250 MG (750 MG, 1 IN 8 HR)
     Dates: start: 20110919
  2. RIBAVIRIN [Concomitant]

REACTIONS (1)
  - INCORRECT DOSE ADMINISTERED [None]
